FAERS Safety Report 5320374-7 (Version None)
Quarter: 2007Q1

REPORT INFORMATION
  Report Type: 
  Country: None (occurrence: None)
  Receive Date: 20070208
  Receipt Date: 20040514
  Transmission Date: 20070707
  Serious: Yes (Other)
  Sender: FDA-Public Use
  Company Number: 470594

PATIENT

DRUGS (1)
  1. KETOROLAC TROMETHAMINE [Suspect]
     Indication: DRUG USE FOR UNKNOWN INDICATION
     Dosage: 15 MG 3 PER DAY; INTRAVENOUS
     Route: 042

REACTIONS (1)
  - GASTROINTESTINAL ULCER [None]
